FAERS Safety Report 4502294-0 (Version None)
Quarter: 2004Q4

REPORT INFORMATION
  Report Type: 
  Country: None (occurrence: None)
  Receive Date: 20041116
  Receipt Date: 20040830
  Transmission Date: 20050328
  Serious: Yes (Hospitalization, Disabling, Other)
  Sender: FDA-Public Use
  Company Number: US-GLAXOSMITHKLINE-A0523768A

PATIENT
  Age: 71 Year
  Sex: Male
  Weight: 80.9 kg

DRUGS (8)
  1. AVANDIA [Suspect]
     Dosage: 4MG PER DAY
     Route: 048
     Dates: start: 20000101, end: 20030101
  2. TOPROL-XL [Concomitant]
     Indication: CARDIAC FAILURE
     Route: 048
  3. ASPIRIN [Concomitant]
     Indication: DRUG USE FOR UNKNOWN INDICATION
     Route: 048
  4. GLUCOPHAGE [Concomitant]
     Indication: DRUG USE FOR UNKNOWN INDICATION
     Route: 048
  5. ZOCOR [Concomitant]
     Indication: DRUG USE FOR UNKNOWN INDICATION
     Route: 048
  6. LASIX [Concomitant]
     Indication: DRUG USE FOR UNKNOWN INDICATION
  7. COUMADIN [Concomitant]
     Indication: DRUG USE FOR UNKNOWN INDICATION
     Route: 048
  8. LANOXIN [Concomitant]
     Indication: DRUG USE FOR UNKNOWN INDICATION
     Route: 048

REACTIONS (8)
  - CARDIAC FAILURE CONGESTIVE [None]
  - DYSPNOEA [None]
  - FLUID RETENTION [None]
  - OEDEMA GENITAL [None]
  - OEDEMA PERIPHERAL [None]
  - PULMONARY HYPERTENSION [None]
  - SCROTAL OEDEMA [None]
  - WEIGHT INCREASED [None]
